FAERS Safety Report 21221615 (Version 1)
Quarter: 2022Q3

REPORT INFORMATION
  Report Type: Spontaneous
  Country: US (occurrence: None)
  Receive Date: 20220816
  Receipt Date: 20220816
  Transmission Date: 20221027
  Serious: Yes (Other)
  Sender: FDA-Public Use
  Company Number: None

PATIENT
  Age: 51 Year
  Sex: Female
  Weight: 70.5 kg

DRUGS (1)
  1. EVUSHELD [Suspect]
     Active Substance: CILGAVIMAB\TIXAGEVIMAB
     Indication: COVID-19
     Dosage: FREQUENCY : ONCE;?
     Route: 030
     Dates: start: 20220812, end: 20220812

REACTIONS (2)
  - Flushing [None]
  - Headache [None]

NARRATIVE: CASE EVENT DATE: 20220812
